FAERS Safety Report 20769670 (Version 2)
Quarter: 2022Q3

REPORT INFORMATION
  Report Type: Spontaneous
  Country: US (occurrence: US)
  Receive Date: 20220429
  Receipt Date: 20220727
  Transmission Date: 20221027
  Serious: Yes (Other)
  Sender: FDA-Public Use
  Company Number: US-PFIZER INC-202200631320

PATIENT
  Age: 25 Year
  Sex: Female

DRUGS (2)
  1. XELJANZ [Suspect]
     Active Substance: TOFACITINIB CITRATE
     Indication: Rheumatoid arthritis
     Dosage: UNK
     Dates: start: 2021
  2. XELJANZ [Suspect]
     Active Substance: TOFACITINIB CITRATE
     Dosage: 5 MG, 2X/DAY
     Route: 048
     Dates: start: 202203, end: 2022

REACTIONS (5)
  - Rheumatoid arthritis [Unknown]
  - Blood cholesterol increased [Unknown]
  - Skin infection [Unknown]
  - Pyrexia [Unknown]
  - COVID-19 [Unknown]

NARRATIVE: CASE EVENT DATE: 20220101
